FAERS Safety Report 17588741 (Version 2)
Quarter: 2025Q4

REPORT INFORMATION
  Report Type: Spontaneous
  Country: EU (occurrence: EU)
  Receive Date: 20200327
  Receipt Date: 20251211
  Transmission Date: 20260118
  Serious: Yes (Hospitalization, Other)
  Sender: AUROBINDO
  Company Number: EU-KRKA-RO2020K04041LIT

PATIENT
  Age: 63 Year
  Sex: Male

DRUGS (3)
  1. BISOPROLOL FUMARATE [Suspect]
     Active Substance: BISOPROLOL FUMARATE
     Indication: Essential hypertension
     Dosage: UNK
     Route: 065
  2. PERINDOPRIL [Suspect]
     Active Substance: PERINDOPRIL
     Indication: Essential hypertension
     Dosage: UNK
     Route: 065
  3. INDAPAMIDE [Suspect]
     Active Substance: INDAPAMIDE
     Indication: Essential hypertension
     Dosage: UNK
     Route: 065

REACTIONS (1)
  - Linear IgA disease [Recovering/Resolving]
